FAERS Safety Report 19797178 (Version 1)
Quarter: 2021Q3

REPORT INFORMATION
  Report Type: Spontaneous
  Country: US (occurrence: US)
  Receive Date: 20210907
  Receipt Date: 20210907
  Transmission Date: 20211014
  Serious: No
  Sender: FDA-Public Use
  Company Number: US-FRESENIUS MEDICAL CARE RENAL THERAPIES GROUP-FMC-2108-001308

PATIENT
  Age: 68 Year
  Sex: Male
  Weight: 95 kg

DRUGS (2)
  1. DELFLEX WITH DEXTROSE 2.5% LOW MAGNESIUM LOW CALCIUM [Suspect]
     Active Substance: CALCIUM CHLORIDE\DEXTROSE\MAGNESIUM CHLORIDE\SODIUM CHLORIDE\SODIUM LACTATE
     Indication: END STAGE RENAL DISEASE
     Dosage: 1.5% AND 2.5% DELFLEX AT 3000 ML FOR 6 CYCLES WITH A LAST FILL OF 2200 ML AND NO DAYTIME EXCHANGE.
     Route: 033
  2. DELFLEX WITH DEXTROSE 1.5% LOW MAGNESIUM LOW CALCIUM [Suspect]
     Active Substance: CALCIUM CHLORIDE\DEXTROSE\MAGNESIUM CHLORIDE\SODIUM CHLORIDE\SODIUM LACTATE
     Indication: END STAGE RENAL DISEASE
     Dosage: 1.5% AND 2.5% DELFLEX AT 3000 ML FOR 6 CYCLES WITH A LAST FILL OF 2200 ML AND NO DAYTIME EXCHANGE.
     Route: 033

REACTIONS (2)
  - Thrombosis in device [Unknown]
  - Thrombosis [Unknown]

NARRATIVE: CASE EVENT DATE: 20210817
